FAERS Safety Report 13949526 (Version 1)
Quarter: 2017Q3

REPORT INFORMATION
  Report Type: Spontaneous
  Country: FR (occurrence: FR)
  Receive Date: 20170908
  Receipt Date: 20170908
  Transmission Date: 20171128
  Serious: Yes (Other)
  Sender: FDA-Public Use
  Company Number: FR-PFIZER INC-2017389696

PATIENT
  Age: 63 Year
  Sex: Male

DRUGS (14)
  1. CORDARONE [Suspect]
     Active Substance: AMIODARONE HYDROCHLORIDE
     Dosage: 200 MG, 1X/DAY (1 TABLET PER DAY)
     Route: 048
     Dates: start: 201405, end: 201705
  2. MICARDIS [Concomitant]
     Active Substance: TELMISARTAN
     Dosage: UNK
  3. CORDARONE [Suspect]
     Active Substance: AMIODARONE HYDROCHLORIDE
     Dosage: 200 MG, 1X/DAY (1 TABLET)
     Route: 048
     Dates: start: 201210, end: 201310
  4. INSPRA [Concomitant]
     Active Substance: EPLERENONE
     Dosage: UNK
  5. LANTUS [Concomitant]
     Active Substance: INSULIN GLARGINE
     Dosage: UNK
  6. CORDARONE [Suspect]
     Active Substance: AMIODARONE HYDROCHLORIDE
     Dosage: 200 MG, 2X/DAY (2 TABLETS PER DAY)
     Route: 048
     Dates: start: 201310, end: 201405
  7. CORDARONE [Suspect]
     Active Substance: AMIODARONE HYDROCHLORIDE
     Dosage: 200 MG, 2X/DAY (2 TABLETS PER DAY)
     Route: 048
     Dates: start: 201705, end: 201707
  8. LASILIX [Concomitant]
     Active Substance: FUROSEMIDE
     Dosage: UNK
  9. BISOCE [Concomitant]
     Active Substance: BISOPROLOL
     Dosage: UNK
  10. VICTOZA [Concomitant]
     Active Substance: LIRAGLUTIDE
     Dosage: UNK
  11. AMAREL [Concomitant]
     Active Substance: GLIMEPIRIDE
     Dosage: UNK
  12. ELISOR [Concomitant]
     Active Substance: PRAVASTATIN SODIUM
     Dosage: UNK
  13. ZYLORIC [Concomitant]
     Active Substance: ALLOPURINOL
     Dosage: UNK
  14. STILNOX [Concomitant]
     Active Substance: ZOLPIDEM TARTRATE
     Dosage: UNK

REACTIONS (3)
  - Thyrotoxic crisis [Recovering/Resolving]
  - Hyperthyroidism [Recovering/Resolving]
  - Dermo-hypodermitis [Unknown]

NARRATIVE: CASE EVENT DATE: 20170621
